FAERS Safety Report 19642348 (Version 1)
Quarter: 2021Q3

REPORT INFORMATION
  Report Type: Spontaneous
  Country: US (occurrence: US)
  Receive Date: 20210730
  Receipt Date: 20210730
  Transmission Date: 20211014
  Serious: No
  Sender: FDA-Public Use
  Company Number: US-SA-2021SA249814

PATIENT
  Age: 40 Year
  Sex: Male

DRUGS (4)
  1. ACYCLOVIR [ACICLOVIR] [Concomitant]
     Active Substance: ACYCLOVIR
  2. CETIRIZINE [Concomitant]
     Active Substance: CETIRIZINE HYDROCHLORIDE
  3. DUPIXENT [Suspect]
     Active Substance: DUPILUMAB
     Indication: DERMATITIS ATOPIC
     Dosage: 300 MG, QOW
     Route: 058
     Dates: start: 20210210
  4. LISINOPRIL. [Concomitant]
     Active Substance: LISINOPRIL

REACTIONS (1)
  - Dermatitis atopic [Recovering/Resolving]

NARRATIVE: CASE EVENT DATE: 20210702
